FAERS Safety Report 19517903 (Version 2)
Quarter: 2021Q3

REPORT INFORMATION
  Report Type: Report from Study
  Country: US (occurrence: US)
  Receive Date: 20210712
  Receipt Date: 20210909
  Transmission Date: 20211014
  Serious: Yes (Hospitalization, Other)
  Sender: FDA-Public Use
  Company Number: US-EMD SERONO-9250112

PATIENT
  Age: 72 Year
  Sex: Female

DRUGS (1)
  1. REBIF [Suspect]
     Active Substance: INTERFERON BETA-1A
     Indication: PRODUCT USED FOR UNKNOWN INDICATION
     Route: 058
     Dates: start: 20210520, end: 2021

REACTIONS (7)
  - Syncope [Unknown]
  - Abdominal discomfort [Unknown]
  - Fall [Unknown]
  - Neck injury [Unknown]
  - Mobility decreased [Unknown]
  - Dizziness [Unknown]
  - Neck pain [Unknown]

NARRATIVE: CASE EVENT DATE: 202106
